FAERS Safety Report 8800232 (Version 3)
Quarter: 2013Q2

REPORT INFORMATION
  Report Type: Report from Study
  Country: CA (occurrence: CA)
  Receive Date: 20120921
  Receipt Date: 20130516
  Transmission Date: 20140414
  Serious: Yes (Death, Other)
  Sender: FDA-Public Use
  Company Number: PHHY2012CA080868

PATIENT
  Sex: Female

DRUGS (2)
  1. SANDOSTATIN LAR [Suspect]
     Indication: GASTROINTESTINAL CARCINOMA
     Dosage: 50 MG, EVERY THREE WEEKS
     Route: 030
     Dates: start: 20090505, end: 20130117
  2. AFINITOR [Suspect]
     Indication: GASTROINTESTINAL CARCINOMA
     Dosage: 10 MG, DAILY
     Route: 048
     Dates: start: 20120824, end: 20120902

REACTIONS (6)
  - Death [Fatal]
  - Pigmentation disorder [Unknown]
  - Diarrhoea [Unknown]
  - Skin discolouration [Unknown]
  - Pain in extremity [Unknown]
  - Local swelling [Unknown]
